FAERS Safety Report 8915669 (Version 2)
Quarter: 2013Q1

REPORT INFORMATION
  Report Type: Spontaneous
  Country: JP (occurrence: JP)
  Receive Date: 20121119
  Receipt Date: 20130103
  Transmission Date: 20140127
  Serious: Yes (Life-Threatening, Other)
  Sender: FDA-Public Use
  Company Number: JP-JHP PHARMACEUTICALS, LLC-JHP201200524

PATIENT
  Age: 34 Year
  Sex: Female
  Weight: 65 kg

DRUGS (3)
  1. PITOCIN [Suspect]
     Indication: UTERINE HAEMORRHAGE
     Dosage: 15 UNITS
  2. ERGOMETRINE [Suspect]
     Indication: UTERINE HAEMORRHAGE
     Dosage: 0.2 MG, UNK
  3. SPINAL-EPIDURAL ANAESTHESIA [Concomitant]
     Indication: EPIDURAL ANAESTHESIA
     Route: 008

REACTIONS (2)
  - Drug ineffective [Recovered/Resolved]
  - Platelet count decreased [None]
